FAERS Safety Report 7207087-1 (Version None)
Quarter: 2011Q1

REPORT INFORMATION
  Report Type: 
  Country: None (occurrence: None)
  Receive Date: 20110103
  Receipt Date: 20101223
  Transmission Date: 20110831
  Serious: Yes (Other)
  Sender: FDA-Public Use
  Company Number: B0691762A

PATIENT
  Age: 81 Year
  Sex: Female

DRUGS (3)
  1. SERETIDE [Suspect]
     Dosage: .25MG TWICE PER DAY
     Route: 055
  2. CALCIMAGON-D3 [Concomitant]
     Dosage: 500MG TWICE PER DAY
     Route: 048
  3. VENTOLIN [Concomitant]
     Dosage: .1MG AS REQUIRED
     Route: 055

REACTIONS (2)
  - OSTEOPOROTIC FRACTURE [None]
  - OSTEOPOROSIS [None]
